FAERS Safety Report 24337883 (Version 1)
Quarter: 2024Q3

REPORT INFORMATION
  Report Type: Spontaneous
  Country: US (occurrence: US)
  Receive Date: 20240919
  Receipt Date: 20240919
  Transmission Date: 20241016
  Serious: Yes (Death)
  Sender: Unknown Manufacturer
  Company Number: US-MELINTA THERAPEUTICS, LLC-US-MLNT-24-00438

PATIENT

DRUGS (3)
  1. METOPROLOL SUCCINATE [Suspect]
     Active Substance: METOPROLOL SUCCINATE
     Indication: Product used for unknown indication
     Dosage: 50 UNK
     Route: 048
  2. LYNPARZA [Concomitant]
     Active Substance: OLAPARIB
     Indication: Breast cancer metastatic
     Dosage: 150 UNK
     Dates: start: 20230601
  3. ORSERDU [Concomitant]
     Active Substance: ELACESTRANT
     Indication: Product used for unknown indication
     Dosage: 345 UNK

REACTIONS (1)
  - Death [Fatal]
